FAERS Safety Report 8599557-9 (Version None)
Quarter: 2012Q3

REPORT INFORMATION
  Report Type: 
  Country: None (occurrence: None)
  Receive Date: 20120808
  Receipt Date: 20120808
  Transmission Date: 20120928
  Serious: Yes (Other)
  Sender: FDA-Public Use
  Company Number: None

PATIENT
  Age: 25 Year
  Sex: Male
  Weight: 87.3 kg

DRUGS (2)
  1. FABRAZYME [Suspect]
  2. FABRAZYME [Suspect]
     Indication: FABRY'S DISEASE
     Dosage: 40MG Q14D IV
     Route: 042

REACTIONS (6)
  - DYSPNOEA [None]
  - PYREXIA [None]
  - CHILLS [None]
  - NAUSEA [None]
  - BLOOD PRESSURE INCREASED [None]
  - HEART RATE INCREASED [None]
